FAERS Safety Report 4987919-8 (Version None)
Quarter: 2006Q2

REPORT INFORMATION
  Report Type: 
  Country: None (occurrence: None)
  Receive Date: 20060424
  Receipt Date: 20060414
  Transmission Date: 20061013
  Serious: Yes (Other)
  Sender: FDA-Public Use
  Company Number: 224126

PATIENT
  Age: 52 Year
  Sex: Male
  Weight: 62.5 kg

DRUGS (4)
  1. MABTHERA [Suspect]
     Indication: B-CELL LYMPHOMA
     Dosage: 650 MG, INTRAVENOUS
     Route: 042
     Dates: start: 20060316, end: 20060316
  2. CYCLOPHOSPHAMIDE [Suspect]
     Indication: B-CELL LYMPHOMA
     Dosage: 1300 MG, INTRAVENOUS
     Route: 042
     Dates: start: 20060316, end: 20060316
  3. VINCRISTINE [Suspect]
     Indication: B-CELL LYMPHOMA
     Dosage: 2 MG , INTRAVENOUS
     Route: 042
     Dates: start: 20060316, end: 20060316
  4. PREDNISOLONE [Suspect]
     Indication: B-CELL LYMPHOMA
     Dosage: 100 MG, ORAL
     Route: 048
     Dates: start: 20060316, end: 20060316

REACTIONS (3)
  - ABDOMINAL DISTENSION [None]
  - ASCITES [None]
  - WEIGHT DECREASED [None]
